FAERS Safety Report 9882391 (Version 1)
Quarter: 2014Q1

REPORT INFORMATION
  Report Type: Spontaneous
  Country: IT (occurrence: IT)
  Receive Date: 20140207
  Receipt Date: 20140207
  Transmission Date: 20141002
  Serious: Yes (Hospitalization)
  Sender: FDA-Public Use
  Company Number: IT-GLAXOSMITHKLINE-B0966989A

PATIENT
  Age: 55 Year
  Sex: Female

DRUGS (10)
  1. ZANTAC [Suspect]
     Indication: ANTIBIOTIC PROPHYLAXIS
     Dosage: 100ML PER DAY
     Dates: start: 20140114, end: 20140115
  2. ZOFRAN [Suspect]
     Indication: ANTIBIOTIC PROPHYLAXIS
     Dosage: 8MG PER DAY
     Route: 042
     Dates: start: 20140114, end: 20140115
  3. CEFAMEZIN [Suspect]
     Indication: ANTIBIOTIC PROPHYLAXIS
     Dosage: 2G PER DAY
     Route: 042
     Dates: start: 20140114
  4. SEVORANE [Suspect]
     Indication: ANAESTHESIA
     Route: 055
     Dates: start: 20140114
  5. TORADOL [Suspect]
     Indication: PRODUCT USED FOR UNKNOWN INDICATION
     Route: 042
     Dates: start: 20140114, end: 20140115
  6. MORFINA [Concomitant]
     Route: 042
  7. REMIFENTANIL [Concomitant]
  8. FENTANEST [Concomitant]
     Route: 042
  9. DIPRIVAN [Concomitant]
     Route: 042
  10. NIMBEX [Concomitant]
     Route: 042

REACTIONS (1)
  - Drug-induced liver injury [Recovering/Resolving]
